FAERS Safety Report 7009634-1 (Version None)
Quarter: 2010Q3

REPORT INFORMATION
  Report Type: 
  Country: None (occurrence: None)
  Receive Date: 20100923
  Receipt Date: 20100920
  Transmission Date: 20110219
  Serious: Yes (Life-Threatening, Other)
  Sender: FDA-Public Use
  Company Number: PHHY2010CA59701

PATIENT
  Sex: Male

DRUGS (8)
  1. DIOVAN HCT [Suspect]
     Indication: HYPERTENSION
     Dosage: 320/25 MG
     Route: 048
     Dates: start: 20100804
  2. NIFEDIPINE [Concomitant]
     Dosage: UNK
     Route: 048
  3. METFORMIN HCL [Concomitant]
     Dosage: 500 MG
  4. VENTOLIN [Concomitant]
     Dosage: 100 MG
  5. FLOVENT [Concomitant]
     Dosage: 250 MG, BID
  6. NEXIUM [Concomitant]
     Dosage: UNK
  7. CLONAZEPAM [Concomitant]
  8. MOMETASONE FUROATE [Concomitant]
     Dosage: 50 MG

REACTIONS (7)
  - ACUTE MYOCARDIAL INFARCTION [None]
  - ANAPHYLACTIC SHOCK [None]
  - ISCHAEMIC HEPATITIS [None]
  - LEG AMPUTATION [None]
  - PERIPHERAL ISCHAEMIA [None]
  - RENAL FAILURE ACUTE [None]
  - VENOUS THROMBOSIS [None]
